FAERS Safety Report 4559158-6 (Version None)
Quarter: 2005Q1

REPORT INFORMATION
  Report Type: 
  Country: None (occurrence: None)
  Receive Date: 20050120
  Receipt Date: 20050120
  Transmission Date: 20050727
  Serious: Yes (Hospitalization, Other)
  Sender: FDA-Public Use
  Company Number: None

PATIENT

DRUGS (1)
  1. DIGOXIN [Suspect]
     Dosage: 0.125 MG ALTERNATE WITH 0.25 MG QOD

REACTIONS (4)
  - BRADYCARDIA [None]
  - DIZZINESS [None]
  - DYSPNOEA [None]
  - THERAPEUTIC AGENT TOXICITY [None]
